FAERS Safety Report 10270123 (Version 1)
Quarter: 2014Q3

REPORT INFORMATION
  Report Type: Spontaneous
  Country: US (occurrence: US)
  Receive Date: 20140701
  Receipt Date: 20140701
  Transmission Date: 20150326
  Serious: No
  Sender: FDA-Public Use
  Company Number: US-BAYER-2014-098599

PATIENT
  Age: 23 Year
  Sex: Female

DRUGS (3)
  1. DEPO-PROVERA [Concomitant]
     Active Substance: MEDROXYPROGESTERONE ACETATE
  2. MIRENA [Suspect]
     Active Substance: LEVONORGESTREL
     Dosage: DAILY DOSE 20 MCG/24HR
  3. ESSURE [Suspect]
     Active Substance: DEVICE
     Indication: CONTRACEPTIVE IMPLANT
     Dosage: UNK
     Dates: start: 2013

REACTIONS (6)
  - Vaginal discharge [Unknown]
  - Pain [None]
  - Dyspareunia [Unknown]
  - Weight increased [Unknown]
  - Abdominal pain [Not Recovered/Not Resolved]
  - Depression [Unknown]

NARRATIVE: CASE EVENT DATE: 2013
